FAERS Safety Report 23783422 (Version 2)
Quarter: 2024Q2

REPORT INFORMATION
  Report Type: Spontaneous
  Country: US (occurrence: US)
  Receive Date: 20240425
  Receipt Date: 20240429
  Transmission Date: 20240716
  Serious: Yes (Other)
  Sender: FDA-Public Use
  Company Number: US-002147023-NVSC2024US053512

PATIENT
  Age: 8 Year
  Sex: Male

DRUGS (4)
  1. OXCARBAZEPINE [Suspect]
     Active Substance: OXCARBAZEPINE
     Indication: Mood swings
     Dosage: UNK
     Route: 065
  2. DEXMETHYLPHENIDATE [Suspect]
     Active Substance: DEXMETHYLPHENIDATE
     Indication: Attention deficit hyperactivity disorder
     Dosage: 0.8 MG/KG (20 MG EACH MORNING), EXTENDED RELEASE
     Route: 065
  3. DEXMETHYLPHENIDATE [Suspect]
     Active Substance: DEXMETHYLPHENIDATE
     Indication: Affective disorder
  4. DEXMETHYLPHENIDATE [Suspect]
     Active Substance: DEXMETHYLPHENIDATE
     Indication: Seasonal allergy

REACTIONS (3)
  - Drug reaction with eosinophilia and systemic symptoms [Unknown]
  - Stevens-Johnson syndrome [Unknown]
  - Off label use [Unknown]
